FAERS Safety Report 7067565-5 (Version None)
Quarter: 2010Q4

REPORT INFORMATION
  Report Type: 
  Country: None (occurrence: None)
  Receive Date: 20101019
  Receipt Date: 20101012
  Transmission Date: 20110411
  Serious: Yes (Hospitalization)
  Sender: FDA-Public Use
  Company Number: 2010SP054759

PATIENT
  Age: 42 Year
  Sex: Female

DRUGS (1)
  1. FOLLISTIM AQ [Suspect]
     Indication: INFERTILITY
     Dosage: 250 MG
     Dates: start: 20100301, end: 20100701

REACTIONS (1)
  - CHOLECYSTITIS [None]
